FAERS Safety Report 9146562 (Version 1)
Quarter: 2013Q1

REPORT INFORMATION
  Report Type: Spontaneous
  Country: FR (occurrence: FR)
  Receive Date: 20130307
  Receipt Date: 20130307
  Transmission Date: 20140127
  Serious: Yes (Hospitalization)
  Sender: FDA-Public Use
  Company Number: FR-ASTELLAS-2013EU002001

PATIENT
  Sex: Male

DRUGS (3)
  1. PROGRAF [Suspect]
     Dosage: 0.2 MG, BID
     Route: 065
  2. PROGRAF [Suspect]
     Dosage: 0.25 MG, BID
     Route: 065
  3. URSOFALK [Concomitant]
     Dosage: UNK
     Route: 065

REACTIONS (2)
  - Intentional drug misuse [Unknown]
  - Hypersensitivity [Unknown]
